FAERS Safety Report 8032800-3 (Version None)
Quarter: 2012Q1

REPORT INFORMATION
  Report Type: 
  Country: None (occurrence: None)
  Receive Date: 20120110
  Receipt Date: 20120109
  Transmission Date: 20120608
  Serious: Yes (Hospitalization)
  Sender: FDA-Public Use
  Company Number: ES-PFIZER INC-2012005690

PATIENT
  Age: 86 Year
  Sex: Female

DRUGS (6)
  1. ALDACTONE [Suspect]
     Indication: HYPERTENSION
     Dosage: 25 MG, 1X/DAY
     Route: 048
     Dates: start: 20111019, end: 20111025
  2. PREVENCOR [Concomitant]
     Indication: DYSLIPIDAEMIA
     Dosage: 10 MG, 1X/DAY
     Route: 048
  3. FUROSEMIDE [Concomitant]
     Indication: CARDIAC FAILURE
     Dosage: 40 MG, 1X/DAY
     Route: 048
  4. SINTROM [Concomitant]
     Indication: ARRHYTHMIA
     Dosage: 1 MG, 1X/DAY
     Route: 048
  5. AMIODARONE HCL [Concomitant]
     Indication: ARRHYTHMIA
     Dosage: 200 MG, 1X/DAY
     Route: 048
  6. DIGOXIN [Concomitant]
     Indication: ARRHYTHMIA
     Dosage: 125 UG, 1X/DAY
     Route: 048

REACTIONS (3)
  - RASH PAPULAR [None]
  - DYSPNOEA [None]
  - TONGUE OEDEMA [None]
